FAERS Safety Report 10285913 (Version 5)
Quarter: 2014Q4

REPORT INFORMATION
  Report Type: Spontaneous
  Country: US (occurrence: None)
  Receive Date: 20140703
  Receipt Date: 20141117
  Transmission Date: 20150528
  Serious: Yes (Death, Other)
  Sender: FDA-Public Use
  Company Number: UNT-2014-000398

PATIENT
  Age: 80 Year
  Sex: Female
  Weight: 64 kg

DRUGS (5)
  1. TRACLEER [Concomitant]
     Active Substance: BOSENTAN\BOSENTAN MONOHYDRATE
  2. TYVASO [Suspect]
     Active Substance: TREPROSTINIL
     Indication: COR PULMONALE CHRONIC
     Route: 055
     Dates: start: 20140207, end: 20140811
  3. TYVASO [Suspect]
     Active Substance: TREPROSTINIL
     Indication: PULMONARY ARTERIAL HYPERTENSION
     Route: 055
     Dates: start: 20140207, end: 20140811
  4. TYLENOL [Concomitant]
     Active Substance: ACETAMINOPHEN
  5. ADCIRCA [Concomitant]
     Active Substance: TADALAFIL

REACTIONS (8)
  - Pulmonary fibrosis [None]
  - Flushing [None]
  - Back pain [None]
  - No therapeutic response [None]
  - Gastrointestinal haemorrhage [None]
  - Dyspnoea [None]
  - Ventricular septal defect [None]
  - Hot flush [None]

NARRATIVE: CASE EVENT DATE: 2014
